FAERS Safety Report 8491056-8 (Version None)
Quarter: 2012Q2

REPORT INFORMATION
  Report Type: 
  Country: None (occurrence: None)
  Receive Date: 20120402
  Receipt Date: 20111128
  Transmission Date: 20120825
  Serious: Yes (Other)
  Sender: FDA-Public Use
  Company Number: 307992USA

PATIENT
  Age: 90 Year
  Sex: Female

DRUGS (1)
  1. TAMOXIFEN CITRATE [Suspect]
     Dates: start: 19980101, end: 20030101

REACTIONS (1)
  - NEOPLASM MALIGNANT [None]
